FAERS Safety Report 10686832 (Version 3)
Quarter: 2015Q3

REPORT INFORMATION
  Report Type: Spontaneous
  Country: US (occurrence: US)
  Receive Date: 20150101
  Receipt Date: 20150710
  Transmission Date: 20151125
  Serious: No
  Sender: FDA-Public Use
  Company Number: US-ASTRAZENECA-2014SE97636

PATIENT
  Age: 743 Month
  Sex: Female
  Weight: 59 kg

DRUGS (2)
  1. CALCIUM CHANNEL BLOCKER [Concomitant]
     Active Substance: UNSPECIFIED INGREDIENT
     Indication: BLOOD PRESSURE ABNORMAL
     Route: 048
     Dates: start: 2014
  2. SYMBICORT [Suspect]
     Active Substance: BUDESONIDE\FORMOTEROL FUMARATE DIHYDRATE
     Indication: CHRONIC OBSTRUCTIVE PULMONARY DISEASE
     Dosage: 160/4.5 MCG 2 PUFFS, BID
     Route: 055

REACTIONS (6)
  - Incorrect product storage [Unknown]
  - Malaise [Unknown]
  - Chest discomfort [Recovered/Resolved]
  - Intentional device misuse [Recovered/Resolved]
  - Accidental underdose [Unknown]
  - Candida infection [Unknown]

NARRATIVE: CASE EVENT DATE: 201412
